FAERS Safety Report 6144870-8 (Version None)
Quarter: 2009Q2

REPORT INFORMATION
  Report Type: 
  Country: None (occurrence: None)
  Receive Date: 20090406
  Receipt Date: 20090403
  Transmission Date: 20091009
  Serious: Yes (Life-Threatening)
  Sender: FDA-Public Use
  Company Number: PHHY2009IL12656

PATIENT
  Age: 88 Year
  Sex: Female

DRUGS (2)
  1. EXELON [Suspect]
     Indication: DEMENTIA ALZHEIMER'S TYPE
     Route: 048
  2. PREDNISONE [Concomitant]
     Dosage: 5 MG DAILY
     Route: 048

REACTIONS (1)
  - CEREBROVASCULAR ACCIDENT [None]
